FAERS Safety Report 4691782-2 (Version None)
Quarter: 2005Q2

REPORT INFORMATION
  Report Type: 
  Country: None (occurrence: None)
  Receive Date: 20050614
  Receipt Date: 20040729
  Transmission Date: 20051028
  Serious: Yes (Life-Threatening)
  Sender: FDA-Public Use
  Company Number: WSDF_00420

PATIENT
  Age: 30 Year
  Sex: Female
  Weight: 108 kg

DRUGS (2)
  1. ANTI-D  (RH) IMMUNOGLOBIN [Suspect]
     Indication: PROPHYLAXIS
     Dosage: 100 MCG ONCE IN
     Dates: start: 20040616, end: 20040616
  2. LANSOPRAZOLE [Concomitant]

REACTIONS (2)
  - HYPOAESTHESIA [None]
  - SWOLLEN TONGUE [None]
